FAERS Safety Report 10413797 (Version 1)
Quarter: 2014Q3

REPORT INFORMATION
  Report Type: Spontaneous
  Country: NO (occurrence: None)
  Receive Date: 20140825
  Receipt Date: 20140825
  Transmission Date: 20150326
  Serious: No
  Sender: FDA-Public Use
  Company Number: NO-2013-3784

PATIENT
  Age: 67 Year
  Sex: Female

DRUGS (4)
  1. CARBOPLATIN (CARBOPLATIN) [Suspect]
     Active Substance: CARBOPLATIN
     Indication: SQUAMOUS CELL CARCINOMA
  2. NAVELBINE [Suspect]
     Active Substance: VINORELBINE TARTRATE
     Indication: SQUAMOUS CELL CARCINOMA
     Route: 048
     Dates: end: 20130801
  3. CIRCADIN (MELATONIN) [Concomitant]
  4. IMOVANE [Concomitant]
     Active Substance: ZOPICLONE

REACTIONS (3)
  - Diarrhoea [None]
  - Rectal haemorrhage [None]
  - Vomiting [None]

NARRATIVE: CASE EVENT DATE: 20130802
